FAERS Safety Report 20158799 (Version 3)
Quarter: 2022Q1

REPORT INFORMATION
  Report Type: Spontaneous
  Country: JP (occurrence: JP)
  Receive Date: 20211208
  Receipt Date: 20220308
  Transmission Date: 20220423
  Serious: Yes (Hospitalization, Other)
  Sender: FDA-Public Use
  Company Number: JP-ONO-2021JP030643

PATIENT
  Age: 8 Decade
  Sex: Male

DRUGS (1)
  1. OPDIVO [Suspect]
     Active Substance: NIVOLUMAB
     Indication: Metastatic renal cell carcinoma
     Dosage: UNK
     Route: 041
     Dates: start: 20180612, end: 202107

REACTIONS (4)
  - Interstitial lung disease [Recovering/Resolving]
  - Tumour pseudoprogression [Unknown]
  - Retroperitoneal fibrosis [Recovering/Resolving]
  - Lymphocytic infiltration [Unknown]

NARRATIVE: CASE EVENT DATE: 20210426
